FAERS Safety Report 24349327 (Version 1)
Quarter: 2024Q3

REPORT INFORMATION
  Report Type: Report from Study
  Country: TW (occurrence: TW)
  Receive Date: 20240923
  Receipt Date: 20240923
  Transmission Date: 20241017
  Serious: Yes (Other)
  Sender: JOHNSON AND JOHNSON
  Company Number: TW-JNJFOC-20240934268

PATIENT
  Age: 62 Year
  Sex: Male

DRUGS (1)
  1. RYBREVANT [Suspect]
     Active Substance: AMIVANTAMAB-VMJW
     Indication: Product used for unknown indication
     Route: 065
     Dates: start: 20240806

REACTIONS (3)
  - Epilepsy [Unknown]
  - Muscular weakness [Unknown]
  - Oedema peripheral [Recovering/Resolving]
